FAERS Safety Report 7461132-7 (Version None)
Quarter: 2011Q2

REPORT INFORMATION
  Report Type: 
  Country: None (occurrence: None)
  Receive Date: 20110505
  Receipt Date: 20090512
  Transmission Date: 20111010
  Serious: Yes (Hospitalization, Other)
  Sender: FDA-Public Use
  Company Number: DE-GENENTECH-318072

PATIENT
  Sex: Female

DRUGS (1)
  1. LUCENTIS [Suspect]
     Indication: AGE-RELATED MACULAR DEGENERATION
     Dosage: UNK
     Route: 031

REACTIONS (5)
  - PAIN [None]
  - VISUAL ACUITY REDUCED [None]
  - AGE-RELATED MACULAR DEGENERATION [None]
  - SKIN DISORDER [None]
  - DYSPHONIA [None]
